FAERS Safety Report 22107099 (Version 1)
Quarter: 2023Q1

REPORT INFORMATION
  Report Type: Report from Study
  Country: US (occurrence: US)
  Receive Date: 20230317
  Receipt Date: 20230317
  Transmission Date: 20230417
  Serious: Yes (Hospitalization)
  Sender: FDA-Public Use
  Company Number: US-SA-SAC20230315000451

PATIENT
  Age: 68 Year
  Sex: Female

DRUGS (1)
  1. BELUMOSUDIL MESYLATE [Suspect]
     Active Substance: BELUMOSUDIL MESYLATE
     Indication: Chronic graft versus host disease
     Dosage: 200 MG, BID
     Route: 048

REACTIONS (4)
  - Blood electrolytes abnormal [Unknown]
  - Oxygen saturation decreased [Unknown]
  - Haemoglobin decreased [Unknown]
  - Inappropriate schedule of product administration [Unknown]
